FAERS Safety Report 5081019-7 (Version None)
Quarter: 2006Q3

REPORT INFORMATION
  Report Type: 
  Country: None (occurrence: None)
  Receive Date: 20060810
  Receipt Date: 20060728
  Transmission Date: 20061208
  Serious: Yes (Other)
  Sender: FDA-Public Use
  Company Number: 111783ISR

PATIENT
  Age: 25 Year
  Sex: Male

DRUGS (4)
  1. CISPLATIN [Suspect]
     Indication: TESTIS CANCER
  2. ETOPOSIDE [Suspect]
     Indication: TESTIS CANCER
  3. BLEOMYCIN [Suspect]
     Indication: TESTIS CANCER
  4. DEXAMETHASONE [Suspect]
     Indication: TESTIS CANCER
     Dosage: SEE IMAGE

REACTIONS (1)
  - OSTEONECROSIS [None]
